FAERS Safety Report 10951332 (Version 6)
Quarter: 2016Q4

REPORT INFORMATION
  Report Type: Report from Study
  Country: US (occurrence: US)
  Receive Date: 20150324
  Receipt Date: 20161224
  Transmission Date: 20170206
  Serious: Yes (Hospitalization, Other)
  Sender: FDA-Public Use
  Company Number: PHEH2015US005076

PATIENT
  Age: 60 Year
  Sex: Male

DRUGS (2)
  1. COSENTYX [Suspect]
     Active Substance: SECUKINUMAB
     Dosage: 300 MG, QW
     Route: 058
     Dates: start: 20150314
  2. COSENTYX [Suspect]
     Active Substance: SECUKINUMAB
     Indication: PSORIASIS
     Dosage: 300 MG, QW
     Route: 058
     Dates: start: 20150303

REACTIONS (12)
  - Seizure [Unknown]
  - Disorientation [Recovered/Resolved]
  - Emotional disorder [Unknown]
  - Sensory disturbance [Unknown]
  - Arteriovenous malformation [Unknown]
  - Memory impairment [Unknown]
  - Partial seizures with secondary generalisation [Unknown]
  - Disorientation [Unknown]
  - Visual impairment [Unknown]
  - Aura [Unknown]
  - Confusional state [Unknown]
  - Loss of consciousness [Unknown]

NARRATIVE: CASE EVENT DATE: 20150312
